FAERS Safety Report 25779329 (Version 1)
Quarter: 2025Q3

REPORT INFORMATION
  Report Type: Spontaneous
  Country: EU (occurrence: EU)
  Receive Date: 20250909
  Receipt Date: 20250909
  Transmission Date: 20251020
  Serious: Yes (Other)
  Sender: GILEAD
  Company Number: EU-GILEAD-2025-0726894

PATIENT
  Age: 53 Year
  Sex: Female

DRUGS (4)
  1. SELADELPAR [Suspect]
     Active Substance: SELADELPAR
     Indication: Product used for unknown indication
     Route: 065
  2. URSO [Concomitant]
     Active Substance: URSODIOL
  3. OBETICHOLIC ACID [Concomitant]
     Active Substance: OBETICHOLIC ACID
  4. BEZA [Concomitant]

REACTIONS (4)
  - Cholestasis [Unknown]
  - Cell death [Not Recovered/Not Resolved]
  - Jaundice [Unknown]
  - Blood bilirubin increased [Unknown]

NARRATIVE: CASE EVENT DATE: 20250815
